FAERS Safety Report 8935957 (Version 1)
Quarter: 2012Q4

REPORT INFORMATION
  Report Type: 
  Country: US (occurrence: US)
  Receive Date: 20121130
  Receipt Date: 20121130
  Transmission Date: 20130627
  Serious: No
  Sender: FDA-Public Use
  Company Number: US-ABBOTT-12P-163-0992000-00

PATIENT
  Sex: Male
  Weight: 93.07 kg

DRUGS (2)
  1. ANDROGEL [Suspect]
     Indication: PRODUCT USED FOR UNKNOWN INDICATION
     Dosage: 2 pumps daily
     Dates: start: 201207, end: 201209
  2. ANDROGEL [Suspect]
     Dosage: 3 pumps daily
     Dates: start: 201209

REACTIONS (1)
  - Alopecia [Not Recovered/Not Resolved]
